FAERS Safety Report 19394654 (Version 1)
Quarter: 2021Q2

REPORT INFORMATION
  Report Type: Spontaneous
  Country: US (occurrence: US)
  Receive Date: 20210609
  Receipt Date: 20210609
  Transmission Date: 20210717
  Serious: No
  Sender: FDA-Public Use
  Company Number: US-TEVA-2021-US-1918524

PATIENT
  Age: 70 Year
  Sex: Female
  Weight: 67.13 kg

DRUGS (3)
  1. ALBUTEROL HFA [Suspect]
     Active Substance: ALBUTEROL SULFATE
     Indication: WHEEZING
  2. ALBUTEROL HFA [Suspect]
     Active Substance: ALBUTEROL SULFATE
     Indication: ASTHMA
     Dosage: DOSAGE FORM: INHALATION ? AEROSOL.?2 PUFFS EVERY 4?6 HOURS AS NEEDED
     Route: 065
  3. VENTOLIN [Concomitant]
     Active Substance: ALBUTEROL SULFATE

REACTIONS (6)
  - Pharyngeal swelling [Unknown]
  - Drug ineffective for unapproved indication [Unknown]
  - Asthma [Unknown]
  - Product formulation issue [Unknown]
  - Dyspnoea [Unknown]
  - Bronchial irritation [Unknown]
